FAERS Safety Report 14935158 (Version 2)
Quarter: 2018Q2

REPORT INFORMATION
  Report Type: Spontaneous
  Country: FR (occurrence: FR)
  Receive Date: 20180524
  Receipt Date: 20180601
  Transmission Date: 20180711
  Serious: Yes (Other)
  Sender: FDA-Public Use
  Company Number: FR-TEVA-2018-FR-885070

PATIENT
  Age: 35 Year
  Sex: Female

DRUGS (2)
  1. OGAST [Concomitant]
     Active Substance: LANSOPRAZOLE
     Route: 065
  2. OFLOXACINE [Suspect]
     Active Substance: OFLOXACIN
     Indication: URINARY TRACT INFECTION
     Route: 048
     Dates: start: 20180112, end: 20180113

REACTIONS (7)
  - Asthenia [Recovering/Resolving]
  - Hyperaesthesia [Not Recovered/Not Resolved]
  - Arthralgia [Recovering/Resolving]
  - Sciatica [Recovered/Resolved]
  - Tendonitis [Recovering/Resolving]
  - Nausea [Recovered/Resolved]
  - Vertigo [Recovered/Resolved]

NARRATIVE: CASE EVENT DATE: 2018
